FAERS Safety Report 11191999 (Version 2)
Quarter: 2015Q2

REPORT INFORMATION
  Report Type: Spontaneous
  Country: FR (occurrence: FR)
  Receive Date: 20150616
  Receipt Date: 20150616
  Transmission Date: 20150821
  Serious: Yes (Hospitalization)
  Sender: FDA-Public Use
  Company Number: FR-BAYER-2015-327416

PATIENT
  Age: 13 Year
  Sex: Female

DRUGS (5)
  1. ALEVE [Suspect]
     Active Substance: NAPROXEN SODIUM
     Indication: HEADACHE
     Dosage: 6 DF, ONCE
     Route: 048
     Dates: start: 20150131, end: 20150131
  2. DOLIPRANE [Suspect]
     Active Substance: ACETAMINOPHEN
     Dosage: 2 DF, ONCE
     Route: 048
     Dates: start: 20150131, end: 20150131
  3. LYSANXIA [Suspect]
     Active Substance: PRAZEPAM
     Dosage: 20 DF, ONCE
     Route: 048
     Dates: start: 20150131, end: 20150131
  4. ALEVE [Suspect]
     Active Substance: NAPROXEN SODIUM
     Indication: FAMILY STRESS
  5. DESLORATADINE. [Suspect]
     Active Substance: DESLORATADINE
     Dosage: 30 DF, ONCE
     Route: 048
     Dates: start: 20150131, end: 20150131

REACTIONS (2)
  - Abdominal pain [Recovered/Resolved]
  - Somnolence [Recovered/Resolved]

NARRATIVE: CASE EVENT DATE: 20150131
